FAERS Safety Report 23711265 (Version 1)
Quarter: 2024Q2

REPORT INFORMATION
  Report Type: Spontaneous
  Country: ES (occurrence: GB)
  Receive Date: 20240405
  Receipt Date: 20240405
  Transmission Date: 20240716
  Serious: Yes (Other)
  Sender: FDA-Public Use
  Company Number: GB-Breckenridge Pharmaceutical, Inc.-2155246

PATIENT
  Age: 33 Year
  Sex: Female
  Weight: 100 kg

DRUGS (1)
  1. DULOXETINE [Suspect]
     Active Substance: DULOXETINE

REACTIONS (1)
  - Parosmia [Not Recovered/Not Resolved]
